FAERS Safety Report 6027267-0 (Version None)
Quarter: 2009Q1

REPORT INFORMATION
  Report Type: 
  Country: None (occurrence: None)
  Receive Date: 20090105
  Receipt Date: 20081223
  Transmission Date: 20090719
  Serious: Yes (Death)
  Sender: FDA-Public Use
  Company Number: US-ASTRAZENECA-2009AC00007

PATIENT
  Age: 41 Year
  Sex: Male

DRUGS (6)
  1. PROPOFOL [Suspect]
     Route: 065
  2. SUCCINYLCHOLINE [Suspect]
     Route: 065
  3. CISATRACURIUM [Suspect]
     Route: 065
  4. MIDAZOLAM [Suspect]
     Route: 065
  5. VENLAFAXINE [Suspect]
     Route: 065
  6. NEOSTIGMINE [Suspect]
     Route: 065

REACTIONS (2)
  - CARDIO-RESPIRATORY ARREST [None]
  - COMPLETED SUICIDE [None]
